FAERS Safety Report 6859668-2 (Version None)
Quarter: 2010Q3

REPORT INFORMATION
  Report Type: 
  Country: None (occurrence: None)
  Receive Date: 20100719
  Receipt Date: 20100714
  Transmission Date: 20110219
  Serious: Yes (Hospitalization)
  Sender: FDA-Public Use
  Company Number: US-BRISTOL-MYERS SQUIBB COMPANY-15195407

PATIENT
  Age: 63 Year
  Sex: Female
  Weight: 69 kg

DRUGS (3)
  1. CARBOPLATIN [Suspect]
     Indication: NON-SMALL CELL LUNG CANCER
     Dosage: 200MG/M2 AUC - 2
     Route: 042
     Dates: start: 20100427, end: 20100706
  2. TAXOL [Suspect]
     Indication: NON-SMALL CELL LUNG CANCER
     Dosage: AUC 6 45MG/M2
     Route: 042
     Dates: start: 20100427, end: 20100706
  3. RADIOTHERAPY [Suspect]
     Indication: NON-SMALL CELL LUNG CANCER
     Dosage: 1DF-74GY NO OF FRACTION:37 NO OF ELAPSED DAYS:56
     Dates: start: 20100427, end: 20100622

REACTIONS (1)
  - CEREBRAL ISCHAEMIA [None]
